FAERS Safety Report 24872497 (Version 1)
Quarter: 2025Q1

REPORT INFORMATION
  Report Type: Spontaneous
  Country: US (occurrence: US)
  Receive Date: 20250122
  Receipt Date: 20250122
  Transmission Date: 20250409
  Serious: Yes (Death, Other)
  Sender: STRIDES
  Company Number: US-STRIDES ARCOLAB LIMITED-2025SP000916

PATIENT
  Age: 64 Year
  Sex: Male

DRUGS (12)
  1. ETOPOSIDE [Suspect]
     Active Substance: ETOPOSIDE
     Indication: Neuroendocrine carcinoma of the oesophagus
     Route: 065
  2. ETOPOSIDE [Suspect]
     Active Substance: ETOPOSIDE
     Indication: Metastases to liver
  3. CARBOPLATIN [Suspect]
     Active Substance: CARBOPLATIN
     Indication: Neuroendocrine carcinoma of the oesophagus
     Route: 065
  4. CARBOPLATIN [Suspect]
     Active Substance: CARBOPLATIN
     Indication: Metastases to liver
  5. ATEZOLIZUMAB [Suspect]
     Active Substance: ATEZOLIZUMAB
     Indication: Neuroendocrine carcinoma of the oesophagus
     Route: 065
  6. ATEZOLIZUMAB [Suspect]
     Active Substance: ATEZOLIZUMAB
     Indication: Metastases to liver
  7. LEUCOVORIN [Suspect]
     Active Substance: LEUCOVORIN\LEUCOVORIN CALCIUM
     Indication: Neuroendocrine carcinoma of the oesophagus
     Route: 065
  8. LEUCOVORIN [Suspect]
     Active Substance: LEUCOVORIN\LEUCOVORIN CALCIUM
     Indication: Metastases to liver
  9. FLUOROURACIL [Suspect]
     Active Substance: FLUOROURACIL
     Indication: Neuroendocrine carcinoma of the oesophagus
     Route: 065
  10. FLUOROURACIL [Suspect]
     Active Substance: FLUOROURACIL
     Indication: Metastases to liver
  11. OXALIPLATIN [Suspect]
     Active Substance: OXALIPLATIN
     Indication: Neuroendocrine carcinoma of the oesophagus
     Route: 065
  12. OXALIPLATIN [Suspect]
     Active Substance: OXALIPLATIN
     Indication: Metastases to liver

REACTIONS (3)
  - Death [Fatal]
  - Malignant neoplasm progression [Unknown]
  - Drug ineffective for unapproved indication [Unknown]
